FAERS Safety Report 6535283-5 (Version None)
Quarter: 2010Q1

REPORT INFORMATION
  Report Type: 
  Country: None (occurrence: None)
  Receive Date: 20100113
  Receipt Date: 20100105
  Transmission Date: 20100710
  Serious: Yes (Hospitalization)
  Sender: FDA-Public Use
  Company Number: US-ROCHE-664125

PATIENT
  Sex: Male

DRUGS (5)
  1. PEGASYS [Suspect]
     Indication: HEPATITIS C
     Dosage: CO-INDICATION: CIRRHOSIS; FORM: PRE-FILLED SYRINGE
     Route: 065
     Dates: start: 20091019, end: 20091202
  2. RIBASPHERE [Suspect]
     Indication: HEPATITIS C
     Dosage: CO-INDICATION: CIRRHOSIS; DIVIDED DOSES
     Route: 065
     Dates: start: 20091019, end: 20091202
  3. INSULIN [Concomitant]
  4. LISINOPRIL [Concomitant]
  5. NORVASC [Concomitant]

REACTIONS (7)
  - ASTHENIA [None]
  - CHILLS [None]
  - DIARRHOEA [None]
  - DIPLOPIA [None]
  - HYPOTENSION [None]
  - JAUNDICE [None]
  - PAIN [None]
